FAERS Safety Report 5238856-5 (Version None)
Quarter: 2007Q1

REPORT INFORMATION
  Report Type: 
  Country: None (occurrence: None)
  Receive Date: 20070215
  Receipt Date: 20070205
  Transmission Date: 20070707
  Serious: Yes (Death)
  Sender: FDA-Public Use
  Company Number: ES-PFIZER INC-2007009252

PATIENT
  Age: 92 Year
  Sex: Female

DRUGS (8)
  1. LYRICA [Suspect]
     Indication: NEURALGIA
     Route: 048
     Dates: start: 20070110, end: 20070101
  2. LYRICA [Suspect]
     Indication: SCIATICA
  3. METAMIZOLE [Concomitant]
     Route: 048
  4. DUPHALAC [Concomitant]
     Route: 048
  5. TORSEMIDE [Concomitant]
  6. OMEPRAZOLE [Concomitant]
     Route: 048
  7. BUPRENORPHINE HCL [Concomitant]
  8. CIDINE [Concomitant]
     Route: 048

REACTIONS (2)
  - GENERAL PHYSICAL HEALTH DETERIORATION [None]
  - HYPOTENSION [None]
